FAERS Safety Report 12394744 (Version 1)
Quarter: 2016Q2

REPORT INFORMATION
  Report Type: Spontaneous
  Country: US (occurrence: US)
  Receive Date: 20160523
  Receipt Date: 20160523
  Transmission Date: 20160815
  Serious: No
  Sender: FDA-Public Use
  Company Number: US-NOVOPROD-459271

PATIENT
  Age: 13 Year
  Sex: Female
  Weight: 49.1 kg

DRUGS (2)
  1. NORDITROPIN [Suspect]
     Active Substance: SOMATROPIN
     Indication: GROWTH HORMONE DEFICIENCY
     Dosage: 2.0 MG, QD, 0.3 MG/KG/WEEK
     Route: 058
     Dates: start: 201408
  2. NORDITROPIN [Suspect]
     Active Substance: SOMATROPIN
     Dosage: 2.2 MG QD, 0.34 MG/KG/WEEK
     Route: 058

REACTIONS (1)
  - Aneurysmal bone cyst [Not Recovered/Not Resolved]

NARRATIVE: CASE EVENT DATE: 20150710
